FAERS Safety Report 19658458 (Version 1)
Quarter: 2021Q3

REPORT INFORMATION
  Report Type: Other
  Country: US (occurrence: US)
  Receive Date: 20210804
  Receipt Date: 20210804
  Transmission Date: 20211014
  Serious: Yes (Other)
  Sender: FDA-Public Use
  Company Number: US-DEXPHARM-20211235

PATIENT
  Age: 69 Year
  Sex: Male

DRUGS (3)
  1. TOBRAMYCIN/      DEXAMETHASONE [Suspect]
     Active Substance: DEXAMETHASONE\TOBRAMYCIN
  2. LOTEPREDNOL ETABONATE [Suspect]
     Active Substance: LOTEPREDNOL ETABONATE
  3. KETOTIFEN [Suspect]
     Active Substance: KETOTIFEN

REACTIONS (2)
  - Drug interaction [Recovered/Resolved]
  - Dacryostenosis acquired [Recovered/Resolved]
